FAERS Safety Report 25393500 (Version 1)
Quarter: 2025Q2

REPORT INFORMATION
  Report Type: Spontaneous
  Country: CN (occurrence: CN)
  Receive Date: 20250604
  Receipt Date: 20250604
  Transmission Date: 20250717
  Serious: Yes (Other)
  Sender: ACCORD
  Company Number: CN-MLMSERVICE-20250519-PI514598-00271-1

PATIENT
  Age: 7 Decade
  Sex: Male

DRUGS (6)
  1. TACROLIMUS [Suspect]
     Active Substance: TACROLIMUS
     Indication: Dermatitis exfoliative generalised
  2. ACITRETIN [Suspect]
     Active Substance: ACITRETIN
     Indication: Dermatitis exfoliative generalised
  3. PREDNISONE [Suspect]
     Active Substance: PREDNISONE
     Indication: Dermatitis exfoliative generalised
     Route: 048
  4. PREDNISONE [Suspect]
     Active Substance: PREDNISONE
     Indication: Benign familial pemphigus
     Route: 048
  5. TACROLIMUS [Suspect]
     Active Substance: TACROLIMUS
     Indication: Eczema
  6. ACITRETIN [Suspect]
     Active Substance: ACITRETIN
     Indication: Eczema

REACTIONS (2)
  - Osteoporosis [Unknown]
  - Hyperglycaemia [Unknown]
